FAERS Safety Report 7577742-2 (Version None)
Quarter: 2011Q2

REPORT INFORMATION
  Report Type: 
  Country: None (occurrence: None)
  Receive Date: 20110628
  Receipt Date: 20110623
  Transmission Date: 20111010
  Serious: Yes (Hospitalization)
  Sender: FDA-Public Use
  Company Number: FR-PFIZER INC-2011139358

PATIENT
  Age: 23 Year
  Sex: Female

DRUGS (2)
  1. ADVIL LIQUI-GELS [Suspect]
     Indication: PAIN
     Dosage: UNK
     Route: 048
     Dates: end: 20110527
  2. ADVIL LIQUI-GELS [Suspect]
     Dosage: 400 MG, 4X/DAY
     Dates: start: 20110527, end: 20110601

REACTIONS (2)
  - OVERDOSE [None]
  - GASTRIC ULCER PERFORATION [None]
